FAERS Safety Report 9705756 (Version 1)
Quarter: 2013Q4

REPORT INFORMATION
  Report Type: Spontaneous
  Country: US (occurrence: US)
  Receive Date: 20131122
  Receipt Date: 20131122
  Transmission Date: 20140711
  Serious: No
  Sender: FDA-Public Use
  Company Number: US-GILEAD-2008-0017951

PATIENT
  Sex: Female
  Weight: 61.69 kg

DRUGS (16)
  1. LETAIRIS [Suspect]
     Indication: PULMONARY ARTERIAL HYPERTENSION
     Route: 048
     Dates: start: 20080804
  2. PLENDIL [Concomitant]
     Dosage: AS DIRECTED
     Route: 048
  3. ZOLOFT [Concomitant]
     Dosage: AS DIRECTED
     Route: 048
  4. CLARITIN [Concomitant]
     Dosage: AS DIRECTED
     Route: 048
  5. ATIVAN [Concomitant]
     Dosage: AS DIRECTED
     Route: 048
  6. CYTOXAN [Concomitant]
     Dosage: AS DIRECTED
  7. HYDROMORPHONE [Concomitant]
     Dosage: AS DIRECTED
  8. DIFLUCAN [Concomitant]
     Dosage: AS DIRECTED
     Route: 048
  9. PREDNISONE [Concomitant]
     Dosage: AS DIRECTED
     Route: 048
  10. COUMADIN [Concomitant]
     Dosage: AS DIRECTED
     Route: 048
  11. PYRIDIUM [Concomitant]
     Dosage: AS DIRECTED
     Route: 048
  12. ZOFRAN [Concomitant]
     Dosage: AS DIRECTED
     Route: 048
  13. VALTREX [Concomitant]
     Dosage: AS DIRECTED
     Route: 048
  14. NEXIUM [Concomitant]
     Dosage: AS DIRECTED
     Route: 048
  15. LACTULOSE [Concomitant]
     Dosage: AS DIRECTED
     Route: 048
  16. SENOKOT [Concomitant]
     Dosage: AS DIRECTED
     Route: 048

REACTIONS (3)
  - Chest discomfort [None]
  - Fluid retention [None]
  - Headache [None]
